FAERS Safety Report 8086722-2 (Version None)
Quarter: 2012Q1

REPORT INFORMATION
  Report Type: 
  Country: None (occurrence: None)
  Receive Date: 20120128
  Receipt Date: 20110613
  Transmission Date: 20120608
  Serious: No
  Sender: FDA-Public Use
  Company Number: US-ABBOTT-11P-163-0731868-00

PATIENT
  Sex: Male
  Weight: 97.61 kg

DRUGS (4)
  1. ASPIRIN [Concomitant]
     Indication: ARTHRALGIA
  2. UNKNOWN STERIOD SHOT [Concomitant]
     Indication: RHEUMATOID ARTHRITIS
     Route: 050
     Dates: start: 20100801, end: 20100901
  3. HUMIRA [Suspect]
     Indication: PSORIATIC ARTHROPATHY
  4. HUMIRA [Suspect]
     Indication: RHEUMATOID ARTHRITIS
     Route: 058
     Dates: start: 20100601, end: 20101201

REACTIONS (2)
  - FATIGUE [None]
  - FEELING ABNORMAL [None]
